FAERS Safety Report 11147242 (Version 1)
Quarter: 2015Q2

REPORT INFORMATION
  Report Type: Spontaneous
  Country: CN (occurrence: CN)
  Receive Date: 20150528
  Receipt Date: 20150528
  Transmission Date: 20150821
  Serious: Yes (Hospitalization, Other)
  Sender: FDA-Public Use
  Company Number: CN-GILEAD-2015-0155087

PATIENT
  Age: 38 Year
  Sex: Male

DRUGS (1)
  1. HEPSERA [Suspect]
     Active Substance: ADEFOVIR DIPIVOXIL
     Indication: CHRONIC HEPATITIS B
     Dosage: 10 MG, QD
     Route: 065
     Dates: start: 200601, end: 201402

REACTIONS (5)
  - Pain [Unknown]
  - Bone loss [Unknown]
  - Fanconi syndrome acquired [Recovered/Resolved]
  - Abasia [Unknown]
  - Osteomalacia [Unknown]
